FAERS Safety Report 9762430 (Version 1)
Quarter: 2013Q4

REPORT INFORMATION
  Report Type: Spontaneous
  Country: US (occurrence: US)
  Receive Date: 20131216
  Receipt Date: 20131216
  Transmission Date: 20140711
  Serious: No
  Sender: FDA-Public Use
  Company Number: US-BIOGENIDEC-2013BI103326

PATIENT
  Age: 57 Year
  Sex: Female
  Weight: 63 kg

DRUGS (10)
  1. TECFIDERA [Suspect]
     Indication: PRODUCT USED FOR UNKNOWN INDICATION
     Route: 048
  2. TECFIDERA [Suspect]
     Indication: PRODUCT USED FOR UNKNOWN INDICATION
     Route: 048
  3. CALCIUM [Concomitant]
     Indication: PRODUCT USED FOR UNKNOWN INDICATION
  4. VIT D [Concomitant]
     Indication: PRODUCT USED FOR UNKNOWN INDICATION
  5. FISH OIL [Concomitant]
     Indication: PRODUCT USED FOR UNKNOWN INDICATION
  6. VITAMIN B COMPLEX [Concomitant]
     Indication: PRODUCT USED FOR UNKNOWN INDICATION
  7. MAXZIDE [Concomitant]
  8. CALCIUM 500 TAB/VIT D [Concomitant]
     Indication: PRODUCT USED FOR UNKNOWN INDICATION
  9. MAXIDE 25 [Concomitant]
     Indication: PRODUCT USED FOR UNKNOWN INDICATION
  10. PEPCID AC [Concomitant]
     Indication: PRODUCT USED FOR UNKNOWN INDICATION

REACTIONS (6)
  - Eructation [Unknown]
  - Nausea [Unknown]
  - Abdominal pain upper [Unknown]
  - Flushing [Unknown]
  - Pruritus [Unknown]
  - Rash [Unknown]
